FAERS Safety Report 5807965-1 (Version None)
Quarter: 2008Q3

REPORT INFORMATION
  Report Type: 
  Country: None (occurrence: None)
  Receive Date: 20080711
  Receipt Date: 20080626
  Transmission Date: 20090109
  Serious: Yes (Hospitalization)
  Sender: FDA-Public Use
  Company Number: FR-AMGEN-UK293506

PATIENT
  Age: 59 Year
  Sex: Female

DRUGS (5)
  1. KEPIVANCE [Suspect]
     Indication: MUCOSAL INFLAMMATION
     Route: 042
  2. CARMUSTINE [Concomitant]
     Route: 065
  3. ETOPOSIDE [Concomitant]
     Route: 065
  4. CYTARABINE [Concomitant]
     Route: 065
  5. MELPHALAN [Concomitant]
     Route: 065

REACTIONS (7)
  - CHILLS [None]
  - FLUSHING [None]
  - PYREXIA [None]
  - RASH [None]
  - RASH MACULO-PAPULAR [None]
  - TOXIC SKIN ERUPTION [None]
  - VASCULITIS [None]
